FAERS Safety Report 6072287-3 (Version None)
Quarter: 2009Q1

REPORT INFORMATION
  Report Type: 
  Country: None (occurrence: None)
  Receive Date: 20090206
  Receipt Date: 20090206
  Transmission Date: 20090719
  Serious: Yes (Other)
  Sender: FDA-Public Use
  Company Number: None

PATIENT
  Age: 82 Year
  Sex: Male
  Weight: 79.3795 kg

DRUGS (1)
  1. ARICEPT [Suspect]
     Indication: AMNESIA
     Dosage: 5MG 1 A DAY PO
     Route: 048
     Dates: start: 20080101, end: 20090204

REACTIONS (2)
  - ALCOHOL USE [None]
  - NIGHTMARE [None]
